FAERS Safety Report 6885413-0 (Version None)
Quarter: 2010Q3

REPORT INFORMATION
  Report Type: 
  Country: None (occurrence: None)
  Receive Date: 20100729
  Receipt Date: 20080121
  Transmission Date: 20110219
  Serious: No
  Sender: FDA-Public Use
  Company Number: US-PFIZER INC-2008006317

PATIENT
  Sex: Female
  Weight: 90 kg

DRUGS (6)
  1. CELEBREX [Suspect]
     Indication: ARTHRITIS
     Dates: start: 20071001, end: 20080101
  2. DARVOCET [Concomitant]
  3. SOMA [Concomitant]
  4. ALPRAZOLAM [Concomitant]
  5. NEXIUM [Concomitant]
  6. AMBIEN [Concomitant]

REACTIONS (5)
  - ACARODERMATITIS [None]
  - PAIN OF SKIN [None]
  - PRURITUS [None]
  - RASH [None]
  - SKIN REACTION [None]
